FAERS Safety Report 4588743-0 (Version None)
Quarter: 2005Q1

REPORT INFORMATION
  Report Type: 
  Country: None (occurrence: None)
  Receive Date: 20050222
  Receipt Date: 20041109
  Transmission Date: 20050727
  Serious: Yes (Death, Life-Threatening)
  Sender: FDA-Public Use
  Company Number: JP-BRISTOL-MYERS SQUIBB COMPANY-12761755

PATIENT
  Age: 65 Year
  Sex: Male

DRUGS (5)
  1. TAXOL [Suspect]
     Indication: PANCREATIC CARCINOMA
     Route: 041
     Dates: start: 20031105, end: 20031125
  2. RESTAMIN [Concomitant]
     Route: 048
     Dates: start: 20031105, end: 20031125
  3. ALDACTONE [Concomitant]
     Route: 048
     Dates: start: 20031105, end: 20031202
  4. LASIX [Concomitant]
     Route: 048
     Dates: start: 20031105, end: 20031202
  5. MYSLEE [Concomitant]
     Route: 048
     Dates: start: 20031108, end: 20031108

REACTIONS (5)
  - HEPATIC ATROPHY [None]
  - JAUNDICE CHOLESTATIC [None]
  - PANCREATIC CARCINOMA [None]
  - SEPTIC SHOCK [None]
  - WHITE BLOOD CELL COUNT DECREASED [None]
